FAERS Safety Report 19256300 (Version 1)
Quarter: 2021Q2

REPORT INFORMATION
  Report Type: Spontaneous
  Country: US (occurrence: US)
  Receive Date: 20210513
  Receipt Date: 20210513
  Transmission Date: 20210717
  Serious: No
  Sender: FDA-Public Use
  Company Number: US-SA-2021SA146425

PATIENT
  Age: 82 Year
  Sex: Male

DRUGS (1)
  1. LANTUS SOLOSTAR [Suspect]
     Active Substance: INSULIN GLARGINE
     Dosage: 75 U, QD
     Route: 065

REACTIONS (9)
  - Weight decreased [Unknown]
  - Glycosylated haemoglobin increased [Unknown]
  - Hunger [Unknown]
  - Feeling abnormal [Unknown]
  - Thirst [Unknown]
  - Hyperglycaemia [Unknown]
  - Dizziness [Unknown]
  - Dehydration [Unknown]
  - Dry mouth [Unknown]
